FAERS Safety Report 9633312 (Version 2)
Quarter: 2013Q4

REPORT INFORMATION
  Report Type: Spontaneous
  Country: US (occurrence: US)
  Receive Date: 20131021
  Receipt Date: 20131112
  Transmission Date: 20140711
  Serious: Yes (Congenital Anomaly, Other)
  Sender: FDA-Public Use
  Company Number: US-PFIZER INC-2013298781

PATIENT
  Sex: Female

DRUGS (7)
  1. ZOLOFT [Suspect]
     Dosage: UNK
     Route: 064
     Dates: start: 20070308
  2. AMOXICILLIN [Concomitant]
     Dosage: 875 MG, UNK
     Route: 064
  3. AZITHROMYCIN [Concomitant]
     Dosage: 250 MG, UNK
     Route: 064
  4. INSULIN PUMP-HUMALOG [Concomitant]
     Dosage: UNK
     Route: 064
  5. CLINDAMYCIN [Concomitant]
     Dosage: 150 MG, UNK
     Route: 064
  6. INSULIN-PEN HUMALOG [Concomitant]
     Dosage: UNK
     Route: 064
  7. PRENATAL VITAMINS [Concomitant]
     Dosage: UNK
     Route: 064

REACTIONS (8)
  - Maternal exposure during pregnancy [Unknown]
  - Fallot^s tetralogy [Unknown]
  - Congenital pulmonary valve disorder [Unknown]
  - Ventricular septal defect [Unknown]
  - Gastrointestinal malformation [Unknown]
  - Umbilical cord abnormality [Unknown]
  - Congenital scoliosis [Unknown]
  - Pelvic kidney [Unknown]
